FAERS Safety Report 4451407-8 (Version None)
Quarter: 2004Q3

REPORT INFORMATION
  Report Type: 
  Country: None (occurrence: None)
  Receive Date: 20040916
  Receipt Date: 20040721
  Transmission Date: 20050211
  Serious: Yes (Life-Threatening, Hospitalization)
  Sender: FDA-Public Use
  Company Number: US-ROCHE-374915

PATIENT
  Age: 15 Year
  Sex: Male
  Weight: 64.8 kg

DRUGS (11)
  1. DACLIZUMAB [Suspect]
     Dosage: FOR A TOTAL OF 5 DOSES (AS PER PROTOCOL).
     Route: 042
     Dates: start: 20040430, end: 20040629
  2. IMMUCOTHEL [Suspect]
     Route: 023
     Dates: start: 20040629, end: 20040629
  3. TETANUS-DIPHTHERIA VACCINE [Suspect]
     Route: 030
     Dates: start: 20040629, end: 20040629
  4. PROGRAF [Suspect]
     Indication: DRUG USE FOR UNKNOWN INDICATION
     Route: 065
     Dates: start: 20040629
  5. MYCOPHENOLATE MOFETIL [Suspect]
     Indication: DRUG USE FOR UNKNOWN INDICATION
     Route: 065
     Dates: start: 20040609, end: 20040715
  6. MYCOPHENOLATE MOFETIL [Suspect]
     Route: 065
     Dates: start: 20040715
  7. PREDNISONE [Suspect]
     Indication: DRUG USE FOR UNKNOWN INDICATION
     Route: 065
     Dates: start: 20040701
  8. RANITIDINE [Concomitant]
     Dates: start: 20040502
  9. ACYCLOVIR [Concomitant]
     Dates: start: 20040504
  10. MACRODANTIN [Concomitant]
     Dates: start: 20040505
  11. DITROPAN [Concomitant]
     Dates: start: 20040511

REACTIONS (6)
  - DEHYDRATION [None]
  - DYSPHAGIA [None]
  - EPSTEIN-BARR VIRUS INFECTION [None]
  - LYMPHOPROLIFERATIVE DISORDER [None]
  - PRODUCTIVE COUGH [None]
  - TONSILLECTOMY [None]
